FAERS Safety Report 25195882 (Version 2)
Quarter: 2025Q2

REPORT INFORMATION
  Report Type: Spontaneous
  Country: US (occurrence: US)
  Receive Date: 20250415
  Receipt Date: 20250617
  Transmission Date: 20250716
  Serious: Yes (Hospitalization, Other)
  Sender: SANOFI AVENTIS
  Company Number: US-SA-2025SA103121

PATIENT
  Age: 58 Year
  Sex: Male

DRUGS (4)
  1. DUPIXENT [Suspect]
     Active Substance: DUPILUMAB
     Indication: Neurodermatitis
     Route: 058
     Dates: start: 20241122, end: 20241122
  2. DUPIXENT [Suspect]
     Active Substance: DUPILUMAB
     Dosage: 300 MG, QOW
     Route: 058
     Dates: start: 20241206
  3. NORCO [Concomitant]
     Active Substance: ACETAMINOPHEN\HYDROCODONE BITARTRATE
  4. BACLOFEN [Concomitant]
     Active Substance: BACLOFEN

REACTIONS (5)
  - Hospitalisation [Unknown]
  - Spinal operation [Unknown]
  - Weight increased [Unknown]
  - Injection site pain [Unknown]
  - Product preparation error [Unknown]
